FAERS Safety Report 15209832 (Version 6)
Quarter: 2018Q4

REPORT INFORMATION
  Report Type: Report from Study
  Country: US (occurrence: US)
  Receive Date: 20180727
  Receipt Date: 20181226
  Transmission Date: 20190204
  Serious: Yes (Hospitalization)
  Sender: FDA-Public Use
  Company Number: US-ACTELION-A-NJ2017-162428

PATIENT
  Age: 66 Year
  Sex: Female

DRUGS (2)
  1. NIACIN. [Suspect]
     Active Substance: NIACIN
     Indication: PRODUCT USED FOR UNKNOWN INDICATION
     Route: 065
  2. OPSUMIT [Suspect]
     Active Substance: MACITENTAN
     Indication: PULMONARY ARTERIAL HYPERTENSION
     Dosage: 10 MG, QD
     Route: 048
     Dates: start: 20170327

REACTIONS (20)
  - Venous aneurysm [Recovered/Resolved]
  - Thrombosis [Unknown]
  - Stent placement [Unknown]
  - Aspartate aminotransferase increased [Unknown]
  - Lipase increased [Unknown]
  - Amylase increased [Unknown]
  - Product dose omission [Not Recovered/Not Resolved]
  - Alanine aminotransferase increased [Unknown]
  - Incontinence [Unknown]
  - Fatigue [Not Recovered/Not Resolved]
  - Post procedural complication [Recovered/Resolved]
  - Diagnostic procedure [Unknown]
  - Pancreatic enzymes increased [Unknown]
  - Headache [Unknown]
  - Peripheral swelling [Recovered/Resolved]
  - Hepatic enzyme increased [Unknown]
  - Hypersensitivity [Recovered/Resolved]
  - Internal haemorrhage [Recovered/Resolved]
  - Urticaria [Recovered/Resolved]
  - Dizziness [Not Recovered/Not Resolved]

NARRATIVE: CASE EVENT DATE: 20180515
